FAERS Safety Report 12228411 (Version 2)
Quarter: 2016Q2

REPORT INFORMATION
  Report Type: Spontaneous
  Country: FR (occurrence: FR)
  Receive Date: 20160401
  Receipt Date: 20160414
  Transmission Date: 20160815
  Serious: Yes (Hospitalization)
  Sender: FDA-Public Use
  Company Number: FR-IROKO PHARMACEUTICALS LLC-FR-I09001-16-00048

PATIENT
  Age: 1 Year
  Sex: Female
  Weight: 11.2 kg

DRUGS (8)
  1. CYSTADROPS [Concomitant]
     Indication: PRODUCT USED FOR UNKNOWN INDICATION
     Route: 065
  2. CYSTAGON [Suspect]
     Active Substance: CYSTEAMINE BITARTRATE
     Indication: CYSTINOSIS
     Route: 048
     Dates: start: 20140701, end: 20160216
  3. IMPORTAL [Concomitant]
     Active Substance: LACTITOL
     Indication: PRODUCT USED FOR UNKNOWN INDICATION
     Route: 065
  4. PHOSPHONEUROS [Concomitant]
     Active Substance: CALCIUM PHOSPHATE, DIBASIC, ANHYDROUS\MAGNESIUM GLYCEROPHOSPHATE\PHOSPHORIC ACID\SODIUM PHOSPHATE, DIBASIC
     Indication: PRODUCT USED FOR UNKNOWN INDICATION
     Route: 065
  5. POTASSIUM [Concomitant]
     Active Substance: POTASSIUM
     Indication: PRODUCT USED FOR UNKNOWN INDICATION
     Route: 065
  6. FERROSTRANE [Concomitant]
     Active Substance: SODIUM FEREDETATE
     Indication: PRODUCT USED FOR UNKNOWN INDICATION
     Route: 065
  7. INDOCIN [Suspect]
     Active Substance: INDOMETHACIN\INDOMETHACIN SODIUM
     Indication: CYSTINOSIS
     Route: 048
     Dates: start: 20140701, end: 20160216
  8. CYSTAGON [Suspect]
     Active Substance: CYSTEAMINE BITARTRATE
     Route: 051
     Dates: start: 20160302

REACTIONS (9)
  - Hypovolaemic shock [Unknown]
  - Cholestasis [Unknown]
  - Septic shock [Unknown]
  - Gastrointestinal haemorrhage [Recovered/Resolved]
  - Cell death [Unknown]
  - Gallbladder disorder [Unknown]
  - Off label use [Recovered/Resolved]
  - Oesophagitis [Unknown]
  - Gastroduodenal ulcer [Recovering/Resolving]

NARRATIVE: CASE EVENT DATE: 20140701
